FAERS Safety Report 21271699 (Version 1)
Quarter: 2022Q3

REPORT INFORMATION
  Report Type: Spontaneous
  Country: FR (occurrence: FR)
  Receive Date: 20220830
  Receipt Date: 20220830
  Transmission Date: 20221027
  Serious: Yes (Hospitalization, Other)
  Sender: FDA-Public Use
  Company Number: None

PATIENT
  Age: 51 Year
  Sex: Female
  Weight: 67.6 kg

DRUGS (2)
  1. CLOZAPINE [Suspect]
     Active Substance: CLOZAPINE
     Indication: Schizoaffective disorder
     Dosage: 300 MILLIGRAM, QD
     Route: 048
     Dates: start: 20220608, end: 20220608
  2. CLOZAPINE [Suspect]
     Active Substance: CLOZAPINE
     Dosage: 725 MILLIGRAM, QD
     Route: 048
     Dates: end: 20220607

REACTIONS (2)
  - Generalised tonic-clonic seizure [Recovered/Resolved]
  - Urinary retention [Recovered/Resolved]

NARRATIVE: CASE EVENT DATE: 20220608
